FAERS Safety Report 10100923 (Version 1)
Quarter: 2014Q2

REPORT INFORMATION
  Report Type: Report from Study
  Country: US (occurrence: US)
  Receive Date: 20140423
  Receipt Date: 20140423
  Transmission Date: 20141212
  Serious: Yes (Hospitalization, Other)
  Sender: FDA-Public Use
  Company Number: US-ABBVIE-14P-163-1225000-00

PATIENT
  Age: 66 Year
  Sex: Female
  Weight: 80.81 kg

DRUGS (5)
  1. HUMIRA [Suspect]
     Indication: PSORIASIS
     Route: 058
     Dates: end: 2014
  2. BABY ASPIRIN [Concomitant]
     Indication: CARDIAC DISORDER
  3. CITALOPRAM [Concomitant]
     Indication: ANXIETY
  4. ATENOLOL [Concomitant]
     Indication: HYPERTENSION
  5. UNKNOWN MEDICATION [Concomitant]
     Indication: BLOOD CHOLESTEROL INCREASED

REACTIONS (2)
  - Coronary artery occlusion [Recovered/Resolved]
  - Angina pectoris [Recovering/Resolving]
